FAERS Safety Report 16577316 (Version 3)
Quarter: 2020Q2

REPORT INFORMATION
  Report Type: Report from Study
  Country: DE (occurrence: DE)
  Receive Date: 20190716
  Receipt Date: 20200401
  Transmission Date: 20200713
  Serious: Yes (Other)
  Sender: FDA-Public Use
  Company Number: PHHY2019DE160116

PATIENT
  Sex: Female
  Weight: 60.6 kg

DRUGS (3)
  1. KISQALI [Suspect]
     Active Substance: RIBOCICLIB
     Indication: BREAST CANCER
     Dosage: 600 MG, QD  (SCHEMA 21 DAYS INTAKE THAN 7 DAYS PAUSE)
     Route: 048
     Dates: start: 20190329
  2. FULVESTRANT. [Suspect]
     Active Substance: FULVESTRANT
     Indication: BREAST CANCER
     Dosage: 500 MG (DAILY DOSE), Q2W
     Route: 030
     Dates: start: 20190329, end: 20190426
  3. FULVESTRANT. [Suspect]
     Active Substance: FULVESTRANT
     Dosage: 500 MG, Q4W
     Route: 030
     Dates: start: 20190427

REACTIONS (1)
  - Hyperkalaemia [Recovered/Resolved]

NARRATIVE: CASE EVENT DATE: 20190510
